FAERS Safety Report 9022324 (Version 5)
Quarter: 2013Q3

REPORT INFORMATION
  Report Type: Report from Study
  Country: FR (occurrence: FR)
  Receive Date: 20130118
  Receipt Date: 20130719
  Transmission Date: 20140515
  Serious: Yes (Other)
  Sender: FDA-Public Use
  Company Number: PHHO2013FR000986

PATIENT
  Sex: 0

DRUGS (2)
  1. CGS 20267 [Suspect]
     Indication: BREAST CANCER
     Dosage: 2.5 MG, QD
     Route: 048
     Dates: start: 20110808, end: 20120604
  2. CAPECITABINE [Concomitant]
     Dosage: 825 MG/M2, BID (FROM DAYS 1 TO 14)
     Route: 048

REACTIONS (2)
  - B-cell lymphoma [Recovered/Resolved]
  - Second primary malignancy [Recovered/Resolved]
